FAERS Safety Report 6010940-8 (Version None)
Quarter: 2008Q4

REPORT INFORMATION
  Report Type: 
  Country: None (occurrence: None)
  Receive Date: 20081218
  Receipt Date: 20081212
  Transmission Date: 20090506
  Serious: Yes (Hospitalization)
  Sender: FDA-Public Use
  Company Number: A0744433A

PATIENT
  Age: 44 Year
  Sex: Male
  Weight: 129.5 kg

DRUGS (11)
  1. AVANDIA [Suspect]
     Dosage: 4MG PER DAY
     Route: 048
     Dates: start: 20040126, end: 20070723
  2. ACTOS [Concomitant]
     Dates: start: 20040128, end: 20050113
  3. METFORMIN HCL [Concomitant]
     Dates: start: 20040401, end: 20041004
  4. INSULIN REGULAR [Concomitant]
     Dates: start: 20020528
  5. INSULIN [Concomitant]
     Dates: start: 20040128, end: 20040228
  6. ATENOLOL [Concomitant]
  7. LIPITOR [Concomitant]
  8. ZOCOR [Concomitant]
  9. ZETIA [Concomitant]
  10. NITROGLYCERIN [Concomitant]
  11. NITROSTAT [Concomitant]

REACTIONS (2)
  - CARDIAC FAILURE CONGESTIVE [None]
  - MYOCARDIAL INFARCTION [None]
